FAERS Safety Report 5486565-X (Version None)
Quarter: 2007Q3

REPORT INFORMATION
  Report Type: 
  Country: None (occurrence: None)
  Receive Date: 20070920
  Receipt Date: 20070201
  Transmission Date: 20080115
  Serious: Yes (Hospitalization)
  Sender: FDA-Public Use
  Company Number: 07P-163-0358124-00

PATIENT
  Age: 15 Year
  Sex: Male

DRUGS (2)
  1. DEPAKOTE ER [Suspect]
     Indication: AFFECTIVE DISORDER
     Dosage: 250 MG, 1.5 TABS, 2 IN 1 DAY FOR 2 WEEKS, PER ORAL, 250 MG, 2 IN 1 D, PER ORAL
     Route: 048
     Dates: start: 20020101, end: 20050101
  2. DEPAKOTE ER [Suspect]
     Indication: AFFECTIVE DISORDER
     Dosage: 250 MG, 1.5 TABS, 2 IN 1 DAY FOR 2 WEEKS, PER ORAL, 250 MG, 2 IN 1 D, PER ORAL
     Route: 048
     Dates: start: 20050101, end: 20050101

REACTIONS (1)
  - PANCREATITIS [None]
